FAERS Safety Report 19708138 (Version 1)
Quarter: 2021Q3

REPORT INFORMATION
  Report Type: Spontaneous
  Country: US (occurrence: US)
  Receive Date: 20210817
  Receipt Date: 20210817
  Transmission Date: 20211014
  Serious: No
  Sender: FDA-Public Use
  Company Number: None

PATIENT
  Age: 8 Year
  Sex: Male
  Weight: 40.5 kg

DRUGS (1)
  1. MONTELUKAST SODIUM CHEWABLE TABLETS, USP 5MG [Suspect]
     Active Substance: MONTELUKAST SODIUM
     Indication: HYPERSENSITIVITY
     Dosage: ?          QUANTITY:30 TABLET(S);?
     Route: 048

REACTIONS (3)
  - Mood swings [None]
  - Treatment noncompliance [None]
  - Anxiety [None]

NARRATIVE: CASE EVENT DATE: 20210817
